FAERS Safety Report 10688732 (Version 2)
Quarter: 2015Q1

REPORT INFORMATION
  Report Type: Spontaneous
  Country: US (occurrence: US)
  Receive Date: 20150102
  Receipt Date: 20150126
  Transmission Date: 20150720
  Serious: No
  Sender: FDA-Public Use
  Company Number: US-GLAXOSMITHKLINE-US2014GSK044975

PATIENT
  Sex: Female

DRUGS (2)
  1. VOTRIENT [Suspect]
     Active Substance: PAZOPANIB HYDROCHLORIDE
     Indication: MALIGNANT CONNECTIVE TISSUE NEOPLASM
     Dosage: 800 MG, QD
     Dates: start: 20141017
  2. VOTRIENT [Suspect]
     Active Substance: PAZOPANIB HYDROCHLORIDE
     Indication: SOFT TISSUE SARCOMA
     Dosage: 600 MG, QD
     Route: 065

REACTIONS (9)
  - Hypertension [Unknown]
  - Muscular weakness [Unknown]
  - Protein urine present [Unknown]
  - Blood urine present [Unknown]
  - Cognitive disorder [Unknown]
  - Fatigue [Recovered/Resolved]
  - Nausea [Unknown]
  - Weight fluctuation [Unknown]
  - Amnesia [Unknown]
